FAERS Safety Report 23375248 (Version 1)
Quarter: 2024Q1

REPORT INFORMATION
  Report Type: Spontaneous
  Country: US (occurrence: US)
  Receive Date: 20240106
  Receipt Date: 20240106
  Transmission Date: 20240409
  Serious: No
  Sender: FDA-Public Use
  Company Number: US-ABBVIE-5572695

PATIENT
  Sex: Male

DRUGS (2)
  1. LATISSE [Suspect]
     Active Substance: BIMATOPROST
     Indication: Growth of eyelashes
     Dosage: 0.03 %
     Route: 050
     Dates: start: 2021, end: 2021
  2. LATISSE [Suspect]
     Active Substance: BIMATOPROST
     Dosage: 0.03 %
     Route: 050
     Dates: start: 2021

REACTIONS (2)
  - Madarosis [Not Recovered/Not Resolved]
  - Therapeutic product effect decreased [Not Recovered/Not Resolved]
